FAERS Safety Report 19821100 (Version 1)
Quarter: 2021Q3

REPORT INFORMATION
  Report Type: Other
  Country: GB (occurrence: GB)
  Receive Date: 20210913
  Receipt Date: 20210913
  Transmission Date: 20211014
  Serious: Yes (Life-Threatening, Other)
  Sender: FDA-Public Use
  Company Number: GB-APOTEX-2021AP042501

PATIENT
  Sex: Female

DRUGS (1)
  1. SEROXAT [Suspect]
     Active Substance: PAROXETINE HYDROCHLORIDE
     Indication: DRUG WITHDRAWAL SYNDROME
     Dosage: UNK
     Route: 048
     Dates: start: 199810

REACTIONS (7)
  - Irritability [Unknown]
  - Suicidal ideation [Unknown]
  - Mood altered [Unknown]
  - Anxiety [Unknown]
  - Disturbance in attention [Unknown]
  - Paranoia [Unknown]
  - Asthenia [Unknown]

NARRATIVE: CASE EVENT DATE: 200201
